FAERS Safety Report 14204996 (Version 1)
Quarter: 2017Q4

REPORT INFORMATION
  Report Type: Spontaneous
  Country: US (occurrence: US)
  Receive Date: 20171119
  Receipt Date: 20171119
  Transmission Date: 20180321
  Serious: Yes (Disabling)
  Sender: FDA-Public Use
  Company Number: None

PATIENT
  Age: 42 Year
  Sex: Female
  Weight: 61.65 kg

DRUGS (8)
  1. MAGNESIUM [Concomitant]
     Active Substance: MAGNESIUM
  2. CALCIUM+D3 [Concomitant]
  3. CIPROFLOXACIN HCL 250 MG TAB [Suspect]
     Active Substance: BENZYL ALCOHOL\CIPROFLOXACIN HYDROCHLORIDE\HYDROCORTISONE
     Indication: URINARY TRACT INFECTION
     Dosage: ?          QUANTITY:6 TABLET(S);?
     Route: 048
     Dates: start: 20170918, end: 20170919
  4. VITAMIN B COMPLEX [Concomitant]
     Active Substance: CYANOCOBALAMIN\DEXPANTHENOL\NIACINAMIDE\PYRIDOXINE HYDROCHLORIDE\RIBOFLAVIN 5^-PHOSPHATE SODIUM\THIAMINE HYDROCHLORIDE\VITAMIN B COMPLEX
  5. IRON [Concomitant]
     Active Substance: IRON
  6. VITAMIN C [Concomitant]
     Active Substance: ASCORBIC ACID
  7. COQ10 [Concomitant]
     Active Substance: UBIDECARENONE
  8. PROBIOTIC [Concomitant]
     Active Substance: PROBIOTICS NOS

REACTIONS (17)
  - Throat irritation [None]
  - Eye irritation [None]
  - Pain [None]
  - Anaemia [None]
  - Tendon pain [None]
  - Hypoaesthesia [None]
  - Back pain [None]
  - Tremor [None]
  - Muscle twitching [None]
  - Chest pain [None]
  - Paraesthesia [None]
  - Toothache [None]
  - Oropharyngeal pain [None]
  - Joint swelling [None]
  - Weight decreased [None]
  - Arthralgia [None]
  - Breast pain [None]

NARRATIVE: CASE EVENT DATE: 20170918
